FAERS Safety Report 4524116-4 (Version None)
Quarter: 2004Q4

REPORT INFORMATION
  Report Type: 
  Country: None (occurrence: None)
  Receive Date: 20041119
  Receipt Date: 20040806
  Transmission Date: 20050328
  Serious: No
  Sender: FDA-Public Use
  Company Number: PHEH2004US08553

PATIENT
  Age: 59 Year
  Sex: Female
  Weight: 56.2 kg

DRUGS (4)
  1. ZELNORM [Suspect]
     Dosage: 6 MG, BID, ORAL
     Route: 048
     Dates: start: 20021120, end: 20030331
  2. LAMISIL [Concomitant]
  3. ALLEGRA [Concomitant]
  4. MILK OF MAGNESIA [Concomitant]

REACTIONS (1)
  - RASH [None]
